FAERS Safety Report 4281387-X (Version None)
Quarter: 2004Q1

REPORT INFORMATION
  Report Type: 
  Country: None (occurrence: None)
  Receive Date: 20040108
  Receipt Date: 20030605
  Transmission Date: 20041129
  Serious: Yes (Hospitalization)
  Sender: FDA-Public Use
  Company Number: HQWYE505006JUN03

PATIENT
  Age: 79 Year
  Sex: Female
  Weight: 63.56 kg

DRUGS (3)
  1. PREMPRO [Suspect]
     Indication: OSTEOPOROSIS
     Dosage: TABLET DAILY; 0.625MG/2.5MG, ORAL
     Route: 048
     Dates: start: 19720101, end: 20021101
  2. PREMPRO [Suspect]
     Indication: PROPHYLAXIS
     Dosage: TABLET DAILY; 0.625MG/2.5MG, ORAL
     Route: 048
     Dates: start: 19720101, end: 20021101
  3. UNSPECIFIED VITAMINS (UNSPECIFIED VITAMINS) [Concomitant]

REACTIONS (1)
  - BREAST CANCER FEMALE [None]
